FAERS Safety Report 7010894-1 (Version None)
Quarter: 2010Q3

REPORT INFORMATION
  Report Type: 
  Country: None (occurrence: None)
  Receive Date: 20100923
  Receipt Date: 20100923
  Transmission Date: 20110219
  Serious: Yes (Other)
  Sender: FDA-Public Use
  Company Number: None

PATIENT
  Sex: Female
  Weight: 61.2356 kg

DRUGS (4)
  1. ESTRACE [Suspect]
     Indication: VAGINAL HAEMORRHAGE
     Dosage: SMALL AMMOUNT EVERY NIGHT INSERT INTO VAG
     Route: 067
     Dates: start: 20100101, end: 20100910
  2. ESTRACE [Suspect]
     Indication: VAGINAL PERFORATION
     Dosage: SMALL AMMOUNT EVERY NIGHT INSERT INTO VAG
     Route: 067
     Dates: start: 20100101, end: 20100910
  3. TOPICORT [Suspect]
     Indication: BACTERIAL INFECTION
     Dosage: SMALL AMMOUNT OUTSIDE VAG EVERY NIGHT
     Route: 067
     Dates: start: 20100101, end: 20100910
  4. TOPICORT [Suspect]
     Indication: FUNGAL INFECTION
     Dosage: SMALL AMMOUNT OUTSIDE VAG EVERY NIGHT
     Route: 067
     Dates: start: 20100101, end: 20100910

REACTIONS (8)
  - ALOPECIA [None]
  - BURNING SENSATION [None]
  - FUNGAL INFECTION [None]
  - INJURY [None]
  - LACRIMATION INCREASED [None]
  - MUSCLE ATROPHY [None]
  - MUSCULAR WEAKNESS [None]
  - PRURITUS [None]
